FAERS Safety Report 9296984 (Version 1)
Quarter: 2013Q2

REPORT INFORMATION
  Report Type: Spontaneous
  Country: CN (occurrence: CN)
  Receive Date: 20130518
  Receipt Date: 20130518
  Transmission Date: 20140414
  Serious: Yes (Death)
  Sender: FDA-Public Use
  Company Number: CN-ROCHE-1225812

PATIENT
  Age: 60 Year
  Sex: Male

DRUGS (5)
  1. XELODA [Suspect]
     Indication: RECTAL CANCER RECURRENT
     Route: 065
  2. OXALIPLATIN [Concomitant]
     Indication: RECTAL CANCER RECURRENT
  3. IRINOTECAN [Concomitant]
     Indication: RECTAL CANCER RECURRENT
  4. RALTITREXED [Concomitant]
     Indication: RECTAL CANCER RECURRENT
  5. CETUXIMAB [Concomitant]
     Indication: RECTAL CANCER RECURRENT

REACTIONS (2)
  - Disease progression [Fatal]
  - Respiratory distress [Fatal]
